FAERS Safety Report 11744108 (Version 1)
Quarter: 2015Q4

REPORT INFORMATION
  Report Type: Spontaneous
  Country: US (occurrence: US)
  Receive Date: 20151116
  Receipt Date: 20151116
  Transmission Date: 20160304
  Serious: Yes (Other)
  Sender: FDA-Public Use
  Company Number: US-DSJP-DSU-2015-127914

PATIENT

DRUGS (3)
  1. ALDACTONE [Concomitant]
     Active Substance: SPIRONOLACTONE
     Indication: PRODUCT USED FOR UNKNOWN INDICATION
     Dosage: 25 MG, UNK
     Dates: start: 201308, end: 201310
  2. BENICAR [Suspect]
     Active Substance: OLMESARTAN MEDOXOMIL
     Indication: PRODUCT USED FOR UNKNOWN INDICATION
     Dosage: UNK
     Dates: start: 2010
  3. BENICAR HCT [Suspect]
     Active Substance: HYDROCHLOROTHIAZIDE\OLMESARTAN MEDOXOMIL
     Indication: HYPERTENSION
     Dosage: 40 MG, QD
     Dates: start: 2010, end: 2014

REACTIONS (15)
  - Diverticulitis [Unknown]
  - Small intestinal bacterial overgrowth [Unknown]
  - Malabsorption [Unknown]
  - Acute kidney injury [Unknown]
  - Anxiety [Unknown]
  - Constipation [Unknown]
  - Depression [Not Recovered/Not Resolved]
  - Dizziness [Unknown]
  - Duodenitis [Unknown]
  - Thirst [Unknown]
  - Pancreatic insufficiency [Unknown]
  - Abdominal distension [Not Recovered/Not Resolved]
  - Helicobacter gastritis [Unknown]
  - Gastrooesophageal reflux disease [Unknown]
  - Faecal incontinence [Unknown]

NARRATIVE: CASE EVENT DATE: 2012
